FAERS Safety Report 6510152-5 (Version None)
Quarter: 2009Q4

REPORT INFORMATION
  Report Type: 
  Country: None (occurrence: None)
  Receive Date: 20091222
  Receipt Date: 20091218
  Transmission Date: 20100525
  Serious: Yes (Hospitalization)
  Sender: FDA-Public Use
  Company Number: D0063970A

PATIENT
  Sex: Male
  Weight: 76 kg

DRUGS (5)
  1. HYCAMTIN [Suspect]
     Indication: SMALL CELL LUNG CANCER METASTATIC
     Dosage: 1.25MGM2 PER DAY
     Route: 042
     Dates: start: 20091012, end: 20091014
  2. HYCAMTIN [Concomitant]
     Route: 042
     Dates: start: 20090921, end: 20090925
  3. FORTECORTIN [Concomitant]
     Dosage: 2MG UNKNOWN
     Route: 065
  4. PANTOZOL [Concomitant]
     Dosage: 20MG UNKNOWN
     Route: 065
  5. SPIRO COMP [Concomitant]
     Route: 065

REACTIONS (11)
  - ANAEMIA [None]
  - CONFUSIONAL STATE [None]
  - GENERAL PHYSICAL HEALTH DETERIORATION [None]
  - HAEMATOTOXICITY [None]
  - LEUKOPENIA [None]
  - MENTAL DISORDER DUE TO A GENERAL MEDICAL CONDITION [None]
  - PANCYTOPENIA [None]
  - PNEUMONIA [None]
  - PSYCHOTIC DISORDER [None]
  - SEPSIS [None]
  - THROMBOCYTOPENIA [None]
